FAERS Safety Report 14471750 (Version 2)
Quarter: 2018Q2

REPORT INFORMATION
  Report Type: Spontaneous
  Country: US (occurrence: US)
  Receive Date: 20180131
  Receipt Date: 20180606
  Transmission Date: 20180711
  Serious: Yes (Death, Hospitalization)
  Sender: FDA-Public Use
  Company Number: US-DSJP-DSU-2017-139310

PATIENT

DRUGS (1)
  1. BENICAR [Suspect]
     Active Substance: OLMESARTAN MEDOXOMIL
     Indication: HYPERTENSION
     Dosage: 20 MG, BID
     Route: 065
     Dates: start: 20130830, end: 20160328

REACTIONS (4)
  - Death [Fatal]
  - Sprue-like enteropathy [Recovered/Resolved]
  - Renal failure [Recovered/Resolved]
  - Coeliac disease [Recovered/Resolved]

NARRATIVE: CASE EVENT DATE: 20160101
